FAERS Safety Report 6330622-2 (Version None)
Quarter: 2009Q3

REPORT INFORMATION
  Report Type: 
  Country: None (occurrence: None)
  Receive Date: 20090827
  Receipt Date: 20090821
  Transmission Date: 20100115
  Serious: Yes (Hospitalization)
  Sender: FDA-Public Use
  Company Number: JP-BRISTOL-MYERS SQUIBB COMPANY-14753594

PATIENT
  Age: 76 Year
  Sex: Male
  Weight: 64 kg

DRUGS (4)
  1. ERBITUX [Suspect]
     Indication: COLON CANCER
     Dosage: 620MG RECENT INF:23JUN09.
     Route: 042
     Dates: start: 20090512
  2. IRINOTECAN HCL [Concomitant]
     Indication: COLON CANCER
     Route: 042
     Dates: start: 20090512
  3. VENA [Concomitant]
     Indication: PREMEDICATION
     Dosage: TABS
     Route: 042
     Dates: start: 20090512
  4. DEXAMETHASONE [Concomitant]
     Indication: PREMEDICATION
     Dosage: TABS
     Route: 048
     Dates: start: 20090512

REACTIONS (2)
  - DECREASED APPETITE [None]
  - MALAISE [None]
